FAERS Safety Report 18359247 (Version 1)
Quarter: 2020Q4

REPORT INFORMATION
  Report Type: Spontaneous
  Country: US (occurrence: US)
  Receive Date: 20201007
  Receipt Date: 20201007
  Transmission Date: 20210114
  Serious: Yes (Other)
  Sender: FDA-Public Use
  Company Number: None

PATIENT
  Age: 43 Year
  Sex: Female
  Weight: 67.5 kg

DRUGS (1)
  1. MONTELUKAST SODIUM 10 MG TAB [Suspect]
     Active Substance: MONTELUKAST SODIUM
     Indication: ASTHMA
     Dosage: ?          QUANTITY:1 TABLET(S);?
     Route: 048
     Dates: start: 20200911, end: 20201001

REACTIONS (8)
  - Depression [None]
  - Abnormal dreams [None]
  - Suicidal ideation [None]
  - Diarrhoea [None]
  - Discomfort [None]
  - Anxiety [None]
  - Judgement impaired [None]
  - Dissociation [None]

NARRATIVE: CASE EVENT DATE: 20200930
